FAERS Safety Report 9292760 (Version 2)
Quarter: 2013Q2

REPORT INFORMATION
  Report Type: Spontaneous
  Country: US (occurrence: US)
  Receive Date: 20130516
  Receipt Date: 20130619
  Transmission Date: 20140414
  Serious: No
  Sender: FDA-Public Use
  Company Number: US-PFIZER INC-2013151334

PATIENT
  Age: 52 Year
  Sex: Female
  Weight: 87.98 kg

DRUGS (11)
  1. LYRICA [Suspect]
     Indication: FIBROMYALGIA
     Dosage: 200 MG, 2X/DAY
     Route: 048
  2. LIPITOR [Suspect]
     Indication: BLOOD CHOLESTEROL INCREASED
     Dosage: 20 MG, 1X/DAY
     Route: 048
  3. ATIVAN [Concomitant]
     Indication: SLEEP DISORDER
     Dosage: 1 MG, AS NEEDED
  4. ATIVAN [Concomitant]
     Indication: ANXIETY
  5. ULTRAM [Concomitant]
     Dosage: UNK
  6. CYMBALTA [Concomitant]
     Dosage: UNK
  7. MOBIC [Concomitant]
     Dosage: UNK
  8. BACLOFEN [Concomitant]
     Dosage: UNK
  9. ZEGERID [Concomitant]
     Dosage: UNK
  10. METFORMIN [Concomitant]
     Dosage: UNK
  11. VESICARE [Concomitant]
     Dosage: UNK

REACTIONS (3)
  - Laryngitis [Unknown]
  - Nasopharyngitis [Unknown]
  - Oropharyngeal pain [Unknown]
